FAERS Safety Report 6331099-3 (Version None)
Quarter: 2009Q3

REPORT INFORMATION
  Report Type: 
  Country: None (occurrence: None)
  Receive Date: 20090827
  Receipt Date: 20090817
  Transmission Date: 20100115
  Serious: Yes (Other)
  Sender: FDA-Public Use
  Company Number: CA-GENENTECH-286135

PATIENT
  Sex: Female

DRUGS (4)
  1. OMALIZUMAB [Suspect]
     Indication: ASTHMA
     Dosage: 375 MG, Q2W
     Route: 058
     Dates: start: 20080327
  2. OMALIZUMAB [Suspect]
     Dosage: 375 MG, Q2W
     Route: 058
     Dates: start: 20090622
  3. OMALIZUMAB [Suspect]
     Dosage: UNK
     Route: 058
  4. ALVESCO [Concomitant]
     Indication: DRUG USE FOR UNKNOWN INDICATION
     Dosage: UNK

REACTIONS (3)
  - HEART RATE INCREASED [None]
  - HYPERSENSITIVITY [None]
  - RHINITIS ALLERGIC [None]
